FAERS Safety Report 6358035-8 (Version None)
Quarter: 2009Q3

REPORT INFORMATION
  Report Type: 
  Country: None (occurrence: None)
  Receive Date: 20090916
  Receipt Date: 20090909
  Transmission Date: 20100115
  Serious: Yes (Hospitalization)
  Sender: FDA-Public Use
  Company Number: A0730958A

PATIENT
  Age: 48 Year
  Sex: Female
  Weight: 70.5 kg

DRUGS (11)
  1. AVANDIA [Suspect]
     Dosage: 4MG PER DAY
     Route: 048
     Dates: start: 20040601, end: 20070101
  2. AVANDAMET [Suspect]
     Route: 065
     Dates: start: 20050101
  3. GLUCOPHAGE [Concomitant]
     Dates: start: 19970101, end: 20050101
  4. LANTUS [Concomitant]
     Dates: start: 20030101
  5. IMDUR [Concomitant]
     Dates: start: 19980101
  6. NITROGLYCERIN [Concomitant]
     Dates: start: 19970101
  7. CYMBALTA [Concomitant]
     Dates: start: 19960101
  8. PROZAC [Concomitant]
     Dates: start: 20040101
  9. NEURONTIN [Concomitant]
  10. PLAVIX [Concomitant]
  11. FOSINOPRIL SODIUM [Concomitant]

REACTIONS (4)
  - CARDIAC DISORDER [None]
  - CARDIAC FAILURE CONGESTIVE [None]
  - INJURY [None]
  - MYOCARDIAL INFARCTION [None]
